FAERS Safety Report 7249800-3 (Version None)
Quarter: 2011Q1

REPORT INFORMATION
  Report Type: 
  Country: None (occurrence: None)
  Receive Date: 20110128
  Receipt Date: 20100422
  Transmission Date: 20110831
  Serious: No
  Sender: FDA-Public Use
  Company Number: A0854301A

PATIENT
  Age: 64 Year
  Sex: Female

DRUGS (1)
  1. WELLBUTRIN XL [Suspect]
     Indication: BIPOLAR DISORDER
     Dosage: 300MG UNKNOWN
     Route: 065

REACTIONS (4)
  - HEADACHE [None]
  - ANXIETY [None]
  - MALAISE [None]
  - DRUG INEFFECTIVE [None]
